FAERS Safety Report 21783191 (Version 1)
Quarter: 2022Q4

REPORT INFORMATION
  Report Type: Spontaneous
  Country: US (occurrence: None)
  Receive Date: 20221223
  Receipt Date: 20221223
  Transmission Date: 20230113
  Serious: Yes (Hospitalization)
  Sender: FDA-Public Use
  Company Number: None

PATIENT
  Age: 60 Year
  Sex: Female

DRUGS (1)
  1. MYCOPHENOLIC ACID [Suspect]
     Active Substance: MYCOPHENOLIC ACID
     Indication: Renal transplant
     Dosage: 500MG TWICE DAILY PO?
     Route: 048
     Dates: start: 20200211

REACTIONS (2)
  - Osteomyelitis [None]
  - Bone operation [None]

NARRATIVE: CASE EVENT DATE: 20221205
